FAERS Safety Report 6161237-7 (Version None)
Quarter: 2009Q2

REPORT INFORMATION
  Report Type: 
  Country: None (occurrence: None)
  Receive Date: 20090420
  Receipt Date: 20090420
  Transmission Date: 20091009
  Serious: No
  Sender: FDA-Public Use
  Company Number: None

PATIENT
  Age: 26 Year
  Sex: Female

DRUGS (1)
  1. GAMMAGARD LIQUID [Suspect]
     Dosage: 24 GM ONCE IV
     Route: 042
     Dates: start: 20090417, end: 20090417

REACTIONS (3)
  - HYPOAESTHESIA [None]
  - PAIN [None]
  - PARAESTHESIA [None]
